FAERS Safety Report 19836862 (Version 3)
Quarter: 2021Q4

REPORT INFORMATION
  Report Type: Spontaneous
  Country: ES (occurrence: ES)
  Receive Date: 20210916
  Receipt Date: 20211025
  Transmission Date: 20220303
  Serious: Yes (Hospitalization, Other)
  Sender: FDA-Public Use
  Company Number: ES-AMGEN-ESPSP2021142960

PATIENT
  Age: 51 Year
  Sex: Male

DRUGS (3)
  1. ADALIMUMAB [Suspect]
     Active Substance: ADALIMUMAB
     Indication: Psoriatic arthropathy
     Dosage: UNK
     Route: 065
     Dates: start: 201610, end: 202003
  2. ADALIMUMAB [Suspect]
     Active Substance: ADALIMUMAB
     Dosage: UNK
     Route: 065
     Dates: start: 202007, end: 202107
  3. METHOTREXATE [Concomitant]
     Active Substance: METHOTREXATE
     Indication: Psoriatic arthropathy
     Dosage: UNK

REACTIONS (3)
  - Haemophagocytic lymphohistiocytosis [Recovered/Resolved]
  - Visceral leishmaniasis [Recovered/Resolved]
  - Cutaneous leishmaniasis [Recovered/Resolved]

NARRATIVE: CASE EVENT DATE: 20190201
